FAERS Safety Report 25338082 (Version 1)
Quarter: 2025Q2

REPORT INFORMATION
  Report Type: Spontaneous
  Country: CO (occurrence: CO)
  Receive Date: 20250520
  Receipt Date: 20250520
  Transmission Date: 20250717
  Serious: Yes (Other)
  Sender: GALPHARM INTERNATIONAL
  Company Number: CO-PERRIGO-25CO006224

PATIENT
  Age: 14 Year
  Sex: Female

DRUGS (1)
  1. MINOXIDIL [Suspect]
     Active Substance: MINOXIDIL
     Indication: Product used for unknown indication
     Route: 061

REACTIONS (3)
  - Central serous chorioretinopathy [Recovered/Resolved]
  - Product administered at inappropriate site [Recovered/Resolved]
  - Product administered to patient of inappropriate age [Recovered/Resolved]
